FAERS Safety Report 24879816 (Version 1)
Quarter: 2025Q1

REPORT INFORMATION
  Report Type: Spontaneous
  Country: IL (occurrence: IL)
  Receive Date: 20250123
  Receipt Date: 20250123
  Transmission Date: 20250408
  Serious: Yes (Other)
  Sender: TEVA
  Company Number: IL-TEVA-VS-3285389

PATIENT
  Age: 39 Year
  Sex: Female

DRUGS (2)
  1. AMLODIPINE [Suspect]
     Active Substance: AMLODIPINE BESYLATE
     Indication: Blood pressure abnormal
     Route: 048
     Dates: start: 2024
  2. AMLODIPINE [Suspect]
     Active Substance: AMLODIPINE BESYLATE
     Indication: Blood pressure abnormal
     Route: 048
     Dates: start: 202501

REACTIONS (3)
  - Abortion spontaneous [Unknown]
  - Maternal exposure during pregnancy [Unknown]
  - Product solubility abnormal [Unknown]

NARRATIVE: CASE EVENT DATE: 20240101
